FAERS Safety Report 15985629 (Version 1)
Quarter: 2019Q1

REPORT INFORMATION
  Report Type: Spontaneous
  Country: US (occurrence: US)
  Receive Date: 20190220
  Receipt Date: 20190220
  Transmission Date: 20190418
  Serious: No
  Sender: FDA-Public Use
  Company Number: US-LANTHEUS-LMI-2018-00356

PATIENT
  Age: 40 Year
  Sex: Female
  Weight: 63 kg

DRUGS (3)
  1. GEODON [Concomitant]
     Active Substance: ZIPRASIDONE HYDROCHLORIDE\ZIPRASIDONE MESYLATE
     Indication: BIPOLAR DISORDER
     Dosage: UNK
     Route: 065
  2. LAMICTAL [Concomitant]
     Active Substance: LAMOTRIGINE
     Indication: BIPOLAR DISORDER
     Dosage: UNK
     Route: 065
  3. DEFINITY [Suspect]
     Active Substance: PERFLUTREN
     Indication: STRESS ECHOCARDIOGRAM
     Dosage: 3 ML, (DILUTION INFORMATION WAS UNKNOWN)
     Route: 065
     Dates: start: 20180706, end: 20180706

REACTIONS (7)
  - Dizziness [Recovered/Resolved]
  - Dysstasia [Recovered/Resolved]
  - Arthralgia [Recovered/Resolved]
  - Muscle tightness [Recovered/Resolved]
  - Back pain [Unknown]
  - Headache [Recovered/Resolved]
  - Burning sensation [Recovering/Resolving]

NARRATIVE: CASE EVENT DATE: 20180706
